FAERS Safety Report 9083858 (Version 2)
Quarter: 2013Q1

REPORT INFORMATION
  Report Type: Spontaneous
  Country: US (occurrence: US)
  Receive Date: 20130130
  Receipt Date: 20130208
  Transmission Date: 20140127
  Serious: Yes (Death, Hospitalization, Other)
  Sender: FDA-Public Use
  Company Number: US-INCYTE CORPORATION-2012IN001578

PATIENT
  Age: 79 None
  Sex: Male
  Weight: 99.32 kg

DRUGS (35)
  1. JAKAFI [Suspect]
     Indication: MYELOFIBROSIS
     Dosage: 10 MG, BID
     Route: 048
     Dates: start: 20120727, end: 20120803
  2. JAKAFI [Suspect]
     Dosage: 5 MG, BID
     Route: 048
     Dates: start: 20120814, end: 20120917
  3. JAKAFI [Suspect]
     Dosage: 10 MG, BID
     Route: 048
     Dates: start: 20120918
  4. JAKAFI [Suspect]
     Dosage: 15 MG, BID
  5. JAKAFI [Suspect]
     Dosage: 10 MG, BID
     Route: 048
  6. SPIRIVA [Suspect]
     Dosage: 1 CAPSULE QD
  7. ADVAIR [Suspect]
     Dosage: 1 PUFF, BID
  8. CENTRUM SILVER [Concomitant]
     Dosage: DAILY
  9. POTASSIUM [Concomitant]
     Dosage: 10 MEQ, QD
  10. GEMFIBROZIL [Concomitant]
     Dosage: 600 MG, BID
  11. IMDUR [Concomitant]
     Dosage: 60 MG, QD
  12. METOPROLOL TARTRATE [Concomitant]
     Dosage: 100 MG, QD
  13. DIOVAN [Concomitant]
     Dosage: 160 MG, QD
  14. GABAPENTIN [Concomitant]
     Dosage: 300 MG, BID 1 A.M., 2 P.M.
  15. PLAVIX [Concomitant]
     Dosage: 75 MG, QD
  16. CELEXA [Concomitant]
     Dosage: 10 MG, QD
  17. PRAVASTATIN [Concomitant]
     Dosage: 20 MG, QD
  18. ACTOS [Concomitant]
     Dosage: 15 MG, QD
  19. LASIX [Concomitant]
     Dosage: 40 MG, QD
  20. FOLIC ACID [Concomitant]
     Dosage: 1 MG, QD
  21. ZANTAC [Concomitant]
     Dosage: 150 MG, BID
  22. NORVASC [Concomitant]
     Dosage: 2.5 MG, QD
  23. VIASPAN [Concomitant]
     Dosage: 2000 MG, QD AT H.S.
  24. ASPIRIN [Concomitant]
     Dosage: 81 MG, QD
  25. LEVOTHYROXINE [Concomitant]
     Dosage: 0.05 MG, QD
  26. NITROGLYCERIN [Concomitant]
     Dosage: 0.4 MG, PRN
  27. FLONASE [Concomitant]
     Dosage: DAILY, PRN
  28. XALATAN [Concomitant]
     Dosage: 1 GTT, QD AT HS
  29. ALBUTEROL [Concomitant]
     Dosage: 2 PUFFS, PRN
  30. PROCRIT [Concomitant]
     Dosage: 40000 UNK, WEEKLY
     Dates: end: 20120820
  31. COLCRYS [Concomitant]
     Dosage: 0.6 MG, QD
  32. FEBUXOSTAT [Concomitant]
     Dosage: UNK
  33. ISORDIL [Concomitant]
     Dosage: UNK
  34. NIASPAN [Concomitant]
     Dosage: 2000 MG, QD
  35. ARANESP [Concomitant]
     Dosage: EVERY 2 WEEKS

REACTIONS (15)
  - Sepsis [Fatal]
  - Pneumonia [Fatal]
  - Haemoglobin decreased [Unknown]
  - Ataxia [Recovered/Resolved]
  - Diplopia [Recovered/Resolved]
  - Asthenia [Recovered/Resolved]
  - Thrombosis [Unknown]
  - Bowel movement irregularity [Unknown]
  - Oropharyngeal pain [Unknown]
  - Transfusion [Unknown]
  - Vertigo [Recovered/Resolved]
  - Dizziness [Recovered/Resolved]
  - Contusion [Unknown]
  - Headache [Unknown]
  - Flatulence [Unknown]
